FAERS Safety Report 17480784 (Version 2)
Quarter: 2020Q1

REPORT INFORMATION
  Report Type: Report from Study
  Country: US (occurrence: US)
  Receive Date: 20200301
  Receipt Date: 20200324
  Transmission Date: 20200409
  Serious: No
  Sender: FDA-Public Use
  Company Number: US-B.I. PHARMACEUTICALS,INC./RIDGEFIELD-2020-US-011429

PATIENT
  Age: 37 Year
  Sex: Male

DRUGS (3)
  1. GLIPIZIDE. [Concomitant]
     Active Substance: GLIPIZIDE
     Indication: TYPE 2 DIABETES MELLITUS
     Dosage: 2 TABLETS QD IN AM
     Route: 065
     Dates: start: 2019
  2. JARDIANCE [Suspect]
     Active Substance: EMPAGLIFLOZIN
     Indication: TYPE 2 DIABETES MELLITUS
     Dosage: 10 MG QD
     Route: 065
     Dates: start: 20200219
  3. METFORMIN [Concomitant]
     Active Substance: METFORMIN HYDROCHLORIDE
     Indication: TYPE 2 DIABETES MELLITUS
     Dosage: 500 MG BID
     Route: 065
     Dates: start: 2017

REACTIONS (5)
  - Thirst [Recovered/Resolved]
  - Blood glucose increased [Recovered/Resolved]
  - Pollakiuria [Recovered/Resolved]
  - Blood glucose decreased [Unknown]
  - Weight decreased [Unknown]

NARRATIVE: CASE EVENT DATE: 202002
